FAERS Safety Report 6401933-7 (Version None)
Quarter: 2009Q4

REPORT INFORMATION
  Report Type: 
  Country: None (occurrence: None)
  Receive Date: 20091015
  Receipt Date: 20091007
  Transmission Date: 20100525
  Serious: Yes (Death, Hospitalization)
  Sender: FDA-Public Use
  Company Number: A0808741A

PATIENT
  Age: 31 Year
  Sex: Male

DRUGS (26)
  1. PYRIMETHAMINE TAB [Suspect]
     Indication: DRUG USE FOR UNKNOWN INDICATION
     Dosage: 25MG THREE TIMES PER DAY
     Route: 065
  2. ZIDOVUDINE [Suspect]
     Indication: ANTIRETROVIRAL THERAPY
     Dosage: 200MG THREE TIMES PER DAY
     Route: 065
  3. LAMIVUDINE [Suspect]
     Indication: ANTIRETROVIRAL THERAPY
     Dosage: 150MG TWICE PER DAY
     Route: 065
  4. ACYCLOVIR [Suspect]
     Indication: ANTIVIRAL PROPHYLAXIS
     Route: 065
     Dates: start: 19960508
  5. CEFTRIAXONE [Suspect]
     Indication: OPPORTUNISTIC INFECTION PROPHYLAXIS
     Route: 065
     Dates: start: 19960508
  6. INVIRASE [Suspect]
     Indication: HIV INFECTION
     Dosage: 600MG THREE TIMES PER DAY
     Route: 048
     Dates: start: 19960501
  7. TRIMETHOPRIM [Suspect]
     Dosage: 150MG PER DAY
     Route: 065
  8. AMPICILLIN [Suspect]
     Indication: OPPORTUNISTIC INFECTION PROPHYLAXIS
     Route: 065
  9. SULPHADIAZINE [Suspect]
     Indication: DRUG USE FOR UNKNOWN INDICATION
     Dosage: 25MG THREE TIMES PER DAY
     Route: 065
  10. DILANTIN [Suspect]
     Indication: DRUG USE FOR UNKNOWN INDICATION
     Dosage: 200MG TWICE PER DAY
     Route: 065
  11. HYDROXYZINE [Suspect]
     Indication: DRUG USE FOR UNKNOWN INDICATION
     Route: 065
  12. METHADONE HYDROCHLORIDE [Suspect]
     Indication: DRUG USE FOR UNKNOWN INDICATION
     Dosage: 40MG PER DAY
     Route: 065
  13. ETHAMBUTOL HYDROCHLORIDE [Suspect]
     Dosage: 150MG TWICE PER DAY
     Route: 065
  14. FOLIC ACID [Suspect]
     Indication: DRUG USE FOR UNKNOWN INDICATION
     Dosage: 5MG PER DAY
     Route: 065
  15. COCAINE [Suspect]
     Indication: DRUG USE FOR UNKNOWN INDICATION
     Route: 065
  16. 3TC [Suspect]
     Indication: DRUG USE FOR UNKNOWN INDICATION
     Dosage: 150MG TWICE PER DAY
  17. SAQUINAVIR [Suspect]
     Indication: DRUG USE FOR UNKNOWN INDICATION
     Dosage: 600MG THREE TIMES PER DAY
  18. AZT [Suspect]
     Indication: DRUG USE FOR UNKNOWN INDICATION
     Dosage: 200MG TWICE PER DAY
  19. VERSED [Suspect]
     Indication: AGITATION
     Route: 065
     Dates: start: 19960508
  20. ATIVAN [Suspect]
     Indication: AGITATION
     Route: 065
     Dates: start: 19960508
  21. HALDOL [Suspect]
     Indication: AGITATION
     Route: 065
     Dates: start: 19960508
  22. PEPCID [Suspect]
     Indication: DRUG USE FOR UNKNOWN INDICATION
     Route: 065
     Dates: start: 19960508
  23. MANNITOL [Suspect]
     Indication: DRUG USE FOR UNKNOWN INDICATION
     Route: 065
     Dates: start: 19960508
  24. MORPHINE [Suspect]
     Indication: DRUG USE FOR UNKNOWN INDICATION
     Route: 065
     Dates: start: 19960509
  25. BENZODIAZEPINES [Suspect]
     Indication: AGITATION
  26. CLINDAMYCIN [Suspect]
     Indication: TOXOPLASMOSIS
     Dates: start: 19960508

REACTIONS (19)
  - AGITATION [None]
  - AREFLEXIA [None]
  - ATAXIA [None]
  - BLOOD CREATINE PHOSPHOKINASE INCREASED [None]
  - BLOOD MAGNESIUM DECREASED [None]
  - BLOOD POTASSIUM DECREASED [None]
  - COMPLEX PARTIAL SEIZURES [None]
  - DEATH [None]
  - DYSKINESIA [None]
  - HEADACHE [None]
  - HYPOTENSION [None]
  - MENTAL IMPAIRMENT [None]
  - MOVEMENT DISORDER [None]
  - MUSCULAR WEAKNESS [None]
  - PARAPARESIS [None]
  - PUPILS UNEQUAL [None]
  - TORSADE DE POINTES [None]
  - VENTRICULAR ARRHYTHMIA [None]
  - VENTRICULAR EXTRASYSTOLES [None]
